FAERS Safety Report 4385491-7 (Version None)
Quarter: 2004Q2

REPORT INFORMATION
  Report Type: 
  Country: None (occurrence: None)
  Receive Date: 20040622
  Receipt Date: 20040610
  Transmission Date: 20050107
  Serious: Yes (Hospitalization)
  Sender: FDA-Public Use
  Company Number: 04P-163-0263550-00

PATIENT
  Age: 31 Year
  Sex: Female
  Weight: 45.3597 kg

DRUGS (4)
  1. NORVIR [Suspect]
     Indication: HIV INFECTION
     Dosage: PER ORAL
     Route: 048
     Dates: start: 20031201, end: 20040530
  2. VIREAD [Concomitant]
  3. RAYATAZ [Concomitant]
  4. LAMIVUDINE [Concomitant]

REACTIONS (4)
  - GASTROINTESTINAL HAEMORRHAGE [None]
  - HEPATIC FAILURE [None]
  - LIPIDS INCREASED [None]
  - VARICES OESOPHAGEAL [None]
